FAERS Safety Report 22973134 (Version 2)
Quarter: 2023Q4

REPORT INFORMATION
  Report Type: Spontaneous
  Country: US (occurrence: US)
  Receive Date: 20230922
  Receipt Date: 20231101
  Transmission Date: 20240109
  Serious: No
  Sender: FDA-Public Use
  Company Number: US-BRISTOL-MYERS SQUIBB COMPANY-2023-134947

PATIENT
  Age: 63 Year
  Sex: Male
  Weight: 59.4 kg

DRUGS (1)
  1. REVLIMID [Suspect]
     Active Substance: LENALIDOMIDE
     Indication: Plasma cell myeloma
     Route: 048

REACTIONS (9)
  - Nausea [Unknown]
  - Diarrhoea [Unknown]
  - Confusional state [Unknown]
  - Dizziness [Unknown]
  - Decreased appetite [Unknown]
  - Arthralgia [Unknown]
  - Chills [Unknown]
  - Brain fog [Unknown]
  - Drug intolerance [Unknown]
